FAERS Safety Report 25515940 (Version 1)
Quarter: 2025Q3

REPORT INFORMATION
  Report Type: Report from Study
  Country: CA (occurrence: CA)
  Receive Date: 20250704
  Receipt Date: 20250704
  Transmission Date: 20251020
  Serious: Yes (Other)
  Sender: ABBVIE
  Company Number: CA-ABBVIE-6352484

PATIENT
  Sex: Female

DRUGS (1)
  1. RINVOQ [Suspect]
     Active Substance: UPADACITINIB
     Indication: Crohn^s disease
     Route: 048

REACTIONS (8)
  - Interstitial lung disease [Unknown]
  - Herpes zoster [Unknown]
  - Blood creatine phosphokinase abnormal [Unknown]
  - Myositis [Unknown]
  - Dyspnoea [Unknown]
  - Diabetes mellitus [Unknown]
  - Viral infection [Unknown]
  - Inflammatory bowel disease [Unknown]
